FAERS Safety Report 9525536 (Version 1)
Quarter: 2013Q3

REPORT INFORMATION
  Report Type: Spontaneous
  Country: US (occurrence: None)
  Receive Date: 20130913
  Receipt Date: 20130913
  Transmission Date: 20140515
  Serious: Yes (Hospitalization)
  Sender: FDA-Public Use
  Company Number: None

PATIENT
  Age: 63 Year
  Sex: Male

DRUGS (1)
  1. AMIODARONE/METOPROLOL [Suspect]
     Indication: ATRIAL FIBRILLATION

REACTIONS (1)
  - Bradycardia [None]
